FAERS Safety Report 9766479 (Version 2)
Quarter: 2014Q1

REPORT INFORMATION
  Report Type: Spontaneous
  Country: US (occurrence: US)
  Receive Date: 20131217
  Receipt Date: 20140224
  Transmission Date: 20141002
  Serious: No
  Sender: FDA-Public Use
  Company Number: US-BIOGENIDEC-2013BI118014

PATIENT
  Sex: Female

DRUGS (20)
  1. TECFIDERA [Suspect]
     Indication: MULTIPLE SCLEROSIS
     Route: 048
     Dates: start: 20131014
  2. TECFIDERA [Suspect]
     Indication: MULTIPLE SCLEROSIS
  3. AVONEX [Concomitant]
     Indication: MULTIPLE SCLEROSIS
     Route: 030
     Dates: start: 20100605, end: 20131031
  4. BACLOFEN [Concomitant]
  5. CLOTRIMAZOLE [Concomitant]
  6. DICYCLOMINE HCL [Concomitant]
  7. FERROUS SULFATE [Concomitant]
  8. FOLIC ACID [Concomitant]
  9. FUROSEMIDE [Concomitant]
  10. GABAPENTIN [Concomitant]
  11. LEVOTHYROXINE SODIUM [Concomitant]
  12. NADOLOL [Concomitant]
  13. OMEPRAZOLE [Concomitant]
  14. SENSA S [Concomitant]
  15. SIMVASTATIN [Concomitant]
  16. TRAMADOL [Concomitant]
  17. ACETAMINOPHEN [Concomitant]
  18. TYLENOL [Concomitant]
  19. VENLAFAXINE HCL [Concomitant]
  20. ZETIA [Concomitant]

REACTIONS (9)
  - Headache [Unknown]
  - Dizziness [Unknown]
  - Cognitive disorder [Recovered/Resolved]
  - General symptom [Recovered/Resolved]
  - Asthenia [Recovered/Resolved]
  - Abdominal pain [Unknown]
  - Nausea [Unknown]
  - Vomiting [Recovered/Resolved]
  - Diarrhoea [Recovered/Resolved]
